FAERS Safety Report 6667605-9 (Version None)
Quarter: 2010Q1

REPORT INFORMATION
  Report Type: 
  Country: None (occurrence: None)
  Receive Date: 20100331
  Receipt Date: 20100316
  Transmission Date: 20100710
  Serious: Yes (Hospitalization)
  Sender: FDA-Public Use
  Company Number: 2010000913

PATIENT
  Age: 65 Year
  Sex: Female

DRUGS (6)
  1. ERLOTINIB (ERLOTINIB) (TABLET) (ERLOTINIB) [Suspect]
     Indication: NON-SMALL CELL LUNG CANCER
     Dosage: (150 MG,QD), ORAL
     Route: 048
     Dates: start: 20090302
  2. BLINDED RO 4858696 (IGF-1R ANTAGONIST) [Suspect]
     Indication: NON-SMALL CELL LUNG CANCER
     Dosage: (Q3W), INTRAVENOUS
     Route: 042
     Dates: start: 20090302
  3. MEDROL [Concomitant]
  4. DUOVENT (DUOVENT) [Concomitant]
  5. GLUCOSE OXIDASE (GLUCOSE OXIDASE) [Concomitant]
  6. NEXIUM [Concomitant]

REACTIONS (5)
  - ATAXIA [None]
  - BLOOD ALBUMIN DECREASED [None]
  - BLOOD POTASSIUM DECREASED [None]
  - FUNGAL SKIN INFECTION [None]
  - GENERAL PHYSICAL HEALTH DETERIORATION [None]
